FAERS Safety Report 8368345-0 (Version None)
Quarter: 2012Q2

REPORT INFORMATION
  Report Type: 
  Country: None (occurrence: None)
  Receive Date: 20120517
  Receipt Date: 20120509
  Transmission Date: 20120825
  Serious: Yes (Hospitalization)
  Sender: FDA-Public Use
  Company Number: US-ELI_LILLY_AND_COMPANY-US201205004206

PATIENT
  Sex: Female

DRUGS (6)
  1. NAPROSYN [Concomitant]
  2. CALCIUM [Concomitant]
  3. FORTEO [Suspect]
     Indication: OSTEOPOROSIS
     Dosage: 20 UG, QD
     Dates: start: 20110601, end: 20110801
  4. PREDNISONE [Concomitant]
  5. METHOTREXATE [Concomitant]
  6. VITAMIN D [Concomitant]

REACTIONS (5)
  - LOWER LIMB FRACTURE [None]
  - DEPRESSED MOOD [None]
  - BONE GRAFT [None]
  - PAIN IN EXTREMITY [None]
  - INSOMNIA [None]
